FAERS Safety Report 9160105 (Version 2)
Quarter: 2013Q2

REPORT INFORMATION
  Report Type: Spontaneous
  Country: US (occurrence: US)
  Receive Date: 20130313
  Receipt Date: 20130411
  Transmission Date: 20140414
  Serious: Yes (Death, Hospitalization)
  Sender: FDA-Public Use
  Company Number: US-MYLANLABS-2013S1004828

PATIENT
  Age: 76 Year
  Sex: Male

DRUGS (1)
  1. SILDENAFIL TABLETS [Suspect]
     Indication: PULMONARY HYPERTENSION
     Route: 048
     Dates: start: 20130130, end: 2013

REACTIONS (4)
  - Coronary artery disease [Fatal]
  - Pulmonary fibrosis [Fatal]
  - Cardiac failure congestive [None]
  - Diabetes mellitus [Fatal]
